FAERS Safety Report 10211013 (Version 1)
Quarter: 2014Q2

REPORT INFORMATION
  Report Type: Spontaneous
  Country: US (occurrence: None)
  Receive Date: 20140530
  Receipt Date: 20140530
  Transmission Date: 20141212
  Serious: Yes (Hospitalization)
  Sender: FDA-Public Use
  Company Number: None

PATIENT
  Age: 52 Year
  Sex: Male

DRUGS (1)
  1. CAPECITABINE [Suspect]
     Indication: PRODUCT USED FOR UNKNOWN INDICATION
     Dosage: 2000MG, BID 14 DAYS ON 7 DAYS OFF, PO
     Route: 048
     Dates: start: 20140501, end: 20140505

REACTIONS (4)
  - Palmar-plantar erythrodysaesthesia syndrome [None]
  - Nausea [None]
  - Vomiting [None]
  - Blister [None]
